FAERS Safety Report 20683991 (Version 1)
Quarter: 2022Q2

REPORT INFORMATION
  Report Type: Spontaneous
  Country: FR (occurrence: FR)
  Receive Date: 20220407
  Receipt Date: 20220407
  Transmission Date: 20220721
  Serious: Yes (Other)
  Sender: FDA-Public Use
  Company Number: FR-ROCHE-3040105

PATIENT
  Age: 30 Year
  Sex: Male

DRUGS (5)
  1. PREGABALIN [Suspect]
     Active Substance: PREGABALIN
     Indication: Product used for unknown indication
     Dosage: 900 MG, DAILY (IN 3 ORAL DOSES)
     Route: 048
     Dates: start: 2015, end: 2020
  2. CANNABIS SATIVA SUBSP. INDICA TOP [Suspect]
     Active Substance: CANNABIS SATIVA SUBSP. INDICA TOP
     Indication: Product used for unknown indication
     Dosage: UNK, DAILY
     Route: 065
  3. RIVOTRIL [Suspect]
     Active Substance: CLONAZEPAM
     Indication: Product used for unknown indication
     Dosage: UNK, DAILY
     Route: 065
  4. DIAZEPAM [Suspect]
     Active Substance: DIAZEPAM
     Indication: Product used for unknown indication
     Dosage: 10 MG, TID (3/D)
     Route: 065
     Dates: start: 2020
  5. DIAZEPAM [Suspect]
     Active Substance: DIAZEPAM
     Dosage: UNK, DAILY
     Route: 065

REACTIONS (2)
  - Drug dependence [Unknown]
  - Intentional product misuse [Unknown]
